FAERS Safety Report 7093783-6 (Version None)
Quarter: 2010Q4

REPORT INFORMATION
  Report Type: 
  Country: None (occurrence: None)
  Receive Date: 20101110
  Receipt Date: 20101028
  Transmission Date: 20110411
  Serious: Yes (Hospitalization)
  Sender: FDA-Public Use
  Company Number: CH-BAYER-201043941GPV

PATIENT
  Age: 22 Year
  Sex: Female

DRUGS (2)
  1. MIRENA [Suspect]
     Indication: CONTRACEPTION
     Route: 015
     Dates: start: 20020101
  2. MIRENA [Suspect]
     Route: 015
     Dates: start: 20080101

REACTIONS (2)
  - BREAST ABSCESS [None]
  - GALACTORRHOEA [None]
